FAERS Safety Report 5242671-6 (Version None)
Quarter: 2007Q1

REPORT INFORMATION
  Report Type: 
  Country: None (occurrence: None)
  Receive Date: 20070214
  Receipt Date: 20070130
  Transmission Date: 20070707
  Serious: Yes (Death, Hospitalization)
  Sender: FDA-Public Use
  Company Number: VNL_0402_2007

PATIENT
  Age: 74 Year
  Sex: Male

DRUGS (10)
  1. APO-GO AMPOULES [Suspect]
     Indication: PARKINSON'S DISEASE
     Dosage: 4 MG/HR CON SC
     Route: 058
     Dates: start: 20050812, end: 20060722
  2. MADOPAR [Concomitant]
  3. CARBIDOPA + LEVODOPA [Concomitant]
  4. AMANTADINE HCL [Concomitant]
  5. PARKOTIL [Concomitant]
  6. AKINETON [Concomitant]
  7. CLOZAPINE [Concomitant]
  8. RIVOTRIL [Concomitant]
  9. NEXIUM [Concomitant]
  10. EXELON [Concomitant]

REACTIONS (4)
  - ASTHENIA [None]
  - BRONCHOPNEUMONIA [None]
  - DEHYDRATION [None]
  - ENTERITIS [None]
